FAERS Safety Report 9059843 (Version 2)
Quarter: 2013Q3

REPORT INFORMATION
  Report Type: Report from Study
  Country: CA (occurrence: CA)
  Receive Date: 20130212
  Receipt Date: 20130818
  Transmission Date: 20140515
  Serious: Yes (Hospitalization, Other)
  Sender: FDA-Public Use
  Company Number: CA-JNJFOC-20130201888

PATIENT
  Age: 72 Year
  Sex: Female
  Weight: 65.5 kg

DRUGS (3)
  1. REMICADE [Suspect]
     Indication: PSORIASIS
     Route: 042
     Dates: start: 201304, end: 2013
  2. REMICADE [Suspect]
     Indication: PSORIASIS
     Dosage: 400 MG
     Route: 042
  3. REMICADE [Suspect]
     Indication: PSORIASIS
     Dosage: PATIENT WAS PUT ON ONCE EVERY 5 WEEKS (UNSPECIFIED FROM WHEN THE DOSE TO BE RECEIVED)
     Route: 042
     Dates: start: 2013

REACTIONS (7)
  - Hip fracture [Unknown]
  - Upper limb fracture [Unknown]
  - Wrist fracture [Unknown]
  - Fall [Unknown]
  - Weight decreased [Unknown]
  - Aphagia [Unknown]
  - Drug ineffective [Unknown]
